FAERS Safety Report 11112683 (Version 2)
Quarter: 2015Q2

REPORT INFORMATION
  Report Type: Spontaneous
  Country: FI (occurrence: FI)
  Receive Date: 20150514
  Receipt Date: 20150601
  Transmission Date: 20150821
  Serious: Yes (Hospitalization)
  Sender: FDA-Public Use
  Company Number: FI-BIOGENIDEC-2015BI060695

PATIENT
  Age: 60 Year
  Sex: Female

DRUGS (8)
  1. TECFIDERA [Suspect]
     Active Substance: DIMETHYL FUMARATE
     Indication: RELAPSING-REMITTING MULTIPLE SCLEROSIS
     Dates: start: 20150418, end: 20150504
  2. TIZANIDINE (TIZANIDINE) [Concomitant]
     Active Substance: TIZANIDINE
  3. SOMAC [Concomitant]
     Active Substance: PANTOPRAZOLE SODIUM
  4. LYRICA [Concomitant]
     Active Substance: PREGABALIN
  5. NORITREN [Concomitant]
     Active Substance: NORTRIPTYLINE HYDROCHLORIDE
  6. RIVOTRIL [Concomitant]
     Active Substance: CLONAZEPAM
  7. NOVORAPID [Concomitant]
     Active Substance: INSULIN ASPART
  8. LANTUS [Concomitant]
     Active Substance: INSULIN GLARGINE

REACTIONS (3)
  - Pyelonephritis [Unknown]
  - Pleural effusion [Not Recovered/Not Resolved]
  - Peripheral swelling [Unknown]

NARRATIVE: CASE EVENT DATE: 20150423
